FAERS Safety Report 8829749 (Version 1)
Quarter: 2012Q4

REPORT INFORMATION
  Report Type: Report from Study
  Country: CA (occurrence: CA)
  Receive Date: 20121008
  Receipt Date: 20121008
  Transmission Date: 20130627
  Serious: Yes (Other)
  Sender: FDA-Public Use
  Company Number: CA-JNJFOC-20120912838

PATIENT
  Age: 63 Year
  Sex: Male
  Weight: 115.3 kg

DRUGS (4)
  1. REMICADE [Suspect]
     Indication: CROHN^S DISEASE
     Dosage: 28 infusions
     Route: 042
  2. INSULIN [Concomitant]
     Route: 065
  3. PENTASA [Concomitant]
     Route: 065
  4. POTASSIUM CHLORIDE [Concomitant]
     Route: 065

REACTIONS (1)
  - Laceration [Recovering/Resolving]
